FAERS Safety Report 25941220 (Version 1)
Quarter: 2025Q4

REPORT INFORMATION
  Report Type: Spontaneous
  Country: US (occurrence: US)
  Receive Date: 20251020
  Receipt Date: 20251020
  Transmission Date: 20260118
  Serious: Yes (Other)
  Sender: COOPERSURGICAL
  Company Number: US-COOPERSURGICAL, INC.-2025CPS007328

PATIENT
  Age: 46 Year
  Sex: Female
  Weight: 92.971 kg

DRUGS (1)
  1. PARAGARD T 380A [Suspect]
     Active Substance: COPPER
     Dosage: UNK
     Route: 015
     Dates: start: 20120522, end: 20210811

REACTIONS (14)
  - Surgery [Recovered/Resolved]
  - Device breakage [Recovered/Resolved]
  - Foreign body in reproductive tract [Recovered/Resolved]
  - Complication of device removal [Recovered/Resolved]
  - Uterine perforation [Unknown]
  - Embedded device [Recovered/Resolved]
  - Depression [Unknown]
  - Escherichia urinary tract infection [Unknown]
  - Cystitis haemorrhagic [Unknown]
  - Tinea cruris [Unknown]
  - Vaginal infection [Unknown]
  - Device dislocation [Recovered/Resolved]
  - Off label use [Unknown]
  - Device use issue [Recovered/Resolved]

NARRATIVE: CASE EVENT DATE: 20170711
